FAERS Safety Report 9291956 (Version 1)
Quarter: 2012Q4

REPORT INFORMATION
  Report Type: Spontaneous
  Country: US (occurrence: None)
  Receive Date: 20121031
  Receipt Date: 20121031
  Transmission Date: 20130627
  Serious: Yes (Other)
  Sender: FDA-Public Use
  Company Number: 2012033522

PATIENT
  Sex: Female
  Weight: 103.42 kg

DRUGS (53)
  1. HIZENTRA (IMMUNOGLOBULIN HUMAN NORMAL) [Suspect]
     Indication: IMMUNODEFICIENCY COMMON VARIABLE
     Route: 058
  2. HIZENTRA (IMMUNOGLOBULIN HUMAN NORMAL) [Suspect]
     Indication: HYPOGAMMAGLOBULINAEMIA
     Route: 058
  3. HIZENTRA (IMMUNOGLOBULIN HUMAN NORMAL) [Suspect]
     Indication: IMMUNODEFICIENCY COMMON VARIABLE
     Route: 058
     Dates: start: 20120921, end: 20120921
  4. HIZENTRA (IMMUNOGLOBULIN HUMAN NORMAL) [Suspect]
     Indication: HYPOGAMMAGLOBULINAEMIA
     Route: 058
     Dates: start: 20120921, end: 20120921
  5. HIZENTRA (IMMUNOGLOBULIN HUMAN NORMAL) [Suspect]
     Indication: IMMUNODEFICIENCY COMMON VARIABLE
     Dosage: (16 g 1x/week, 13th treatment at home Subcutaneous)
     Dates: start: 20120828, end: 20120828
  6. HIZENTRA (IMMUNOGLOBULIN HUMAN NORMAL) [Suspect]
     Indication: HYPOGAMMAGLOBULINAEMIA
     Dosage: (16 g 1x/week, 13th treatment at home Subcutaneous)
     Dates: start: 20120828, end: 20120828
  7. HIZENTRA (IMMUNOGLOBULIN HUMAN NORMAL) [Suspect]
     Indication: IMMUNODEFICIENCY COMMON VARIABLE
     Dosage: (16 g 1x/week, 14th treatment at home Subcutaneous)
     Dates: start: 20120904, end: 20120904
  8. HIZENTRA (IMMUNOGLOBULIN HUMAN NORMAL) [Suspect]
     Indication: HYPOGAMMAGLOBULINAEMIA
     Dosage: (16 g 1x/week, 14th treatment at home Subcutaneous)
     Dates: start: 20120904, end: 20120904
  9. PREDNISONE (PREDNISONE) [Suspect]
  10. ALLEGRA (FEXOFENADINE) [Concomitant]
  11. BENADRYL (DIPHENHYDRAMINE HYDROCHLORIDE) [Concomitant]
  12. TYLENOL (PARACETAMOL) [Concomitant]
  13. K-DUR (POTASSIUM CHLORIDE) [Concomitant]
  14. LASIX (FUROSEMIDE) [Concomitant]
  15. ARIMIDEX (ANASTROZOLE) [Concomitant]
  16. ATROVENT (IPRATROPIUM BROMIDE) [Concomitant]
  17. ALLERGA (FEXOFENADINE) [Concomitant]
  18. PHENERGAN (PROMETHAZINE) [Concomitant]
  19. NITROLINGUAL SOLUTION (GLYCERYL TRINITRATE) [Concomitant]
  20. METHOTREXATE (METHOTREXATE) [Concomitant]
  21. ASTELIN (DIPROPHYLLINE) [Concomitant]
  22. PROTONIX (PANTOPRAZOLE) [Concomitant]
  23. FOLIC ACID (FOLIC ACID) [Concomitant]
  24. FORTEO (TERIPARATIDE) [Concomitant]
  25. VITAMIN D3 (COLECALCIFEROL) [Concomitant]
  26. COENZYME Q10 (UBIDECARENONE) [Concomitant]
  27. ATROVENT (IPRATROPIUM BROMIDE) [Concomitant]
  28. ALBUTEROL (SALBUTAMOL) [Concomitant]
  29. TYLENOL (PARACETAMOL) [Concomitant]
  30. PATANOL (OLOPATADINE HYDROCHLORIDE) [Concomitant]
  31. XOPENEX (LEVOSALBUTAMOL) [Concomitant]
  32. DIFLUCAN (FLUCONAZOLE) [Concomitant]
  33. SINGULAIR (MONTELUKAST) 10MG [Concomitant]
  34. SYMBICORT (BUDESONIDE W/FORMOTEROL FUMARATE) [Concomitant]
  35. SPIRIVA (TIOTROPIUM BROMIDE) [Concomitant]
  36. LIDODERM (LIDOCAINE) [Concomitant]
  37. CRESTOR (ROSUVASTATIN) [Concomitant]
  38. BUTALBITAL (BUTALBITAL) [Concomitant]
  39. SUDAFED (PSEUDOEPHEDRINE HYDROCHLORIDE) [Concomitant]
  40. AURALGAN (AURALGAN) [Concomitant]
  41. OMNARIS (CICLESONIDE) [Concomitant]
  42. PLAVIX (CLOPIDOGREL) [Concomitant]
  43. CELEXA (CITALOPRAM HYDROBROMIDE) [Concomitant]
  44. FLOVENT (FLUTICASONE PROPIONATE) [Concomitant]
  45. ZITHROMAX (AZITHROMYCIN) [Concomitant]
  46. VERAPAMIL (VERAPAMIL) [Concomitant]
  47. LISINOPRIL (LISINOPRIL) [Concomitant]
  48. PROAIR (SALBUTAMOL SULFATE) [Concomitant]
  49. ZETONNA (CICLESONIDE) [Concomitant]
  50. SYNTHROID (LEVOTHYROXINE SODIUM) [Concomitant]
  51. PANTONOL (OLOPATADINE) [Concomitant]
  52. EPIPEN (EPINEPHRINE) [Concomitant]
  53. BENADRYL (DIPHENHYDRAMINE HYDROCHLORIDE) [Concomitant]

REACTIONS (20)
  - Urticaria [None]
  - Erythema [None]
  - Swelling [None]
  - White blood cell count decreased [None]
  - Blood urea increased [None]
  - Hypoaesthesia [None]
  - No therapeutic response [None]
  - Neuropathy peripheral [None]
  - Autoimmune neuropathy [None]
  - Intervertebral disc protrusion [None]
  - Chest pain [None]
  - Dysphagia [None]
  - Oesophagitis [None]
  - Arthropod bite [None]
  - Foot fracture [None]
  - Pain in extremity [None]
  - Hypoaesthesia [None]
  - Burning sensation [None]
  - Feeling of body temperature change [None]
  - Product quality issue [None]
